FAERS Safety Report 7014250-1 (Version None)
Quarter: 2010Q3

REPORT INFORMATION
  Report Type: 
  Country: None (occurrence: None)
  Receive Date: 20100927
  Receipt Date: 20100916
  Transmission Date: 20110219
  Serious: Yes (Other)
  Sender: FDA-Public Use
  Company Number: FR-JNJFOC-20100906131

PATIENT
  Age: 57 Year
  Sex: Female

DRUGS (4)
  1. CAELYX [Suspect]
     Indication: BREAST CANCER METASTATIC
     Route: 042
  2. ENDOXAN [Concomitant]
     Route: 065
  3. METHYLPREDNISOLONE [Concomitant]
     Route: 065
  4. ZOFRAN [Concomitant]
     Route: 065

REACTIONS (2)
  - CARDIOVASCULAR DISORDER [None]
  - HYPERSENSITIVITY [None]
